FAERS Safety Report 9700993 (Version 1)
Quarter: 2013Q4

REPORT INFORMATION
  Report Type: Spontaneous
  Country: US (occurrence: US)
  Receive Date: 20131121
  Receipt Date: 20131121
  Transmission Date: 20140711
  Serious: Yes (Death)
  Sender: FDA-Public Use
  Company Number: US-ASTELLAS-2013US012076

PATIENT
  Age: 56 Year
  Sex: Female

DRUGS (2)
  1. PROGRAF [Suspect]
     Indication: TRANSPLANT
     Dosage: 1 MG, UID/QD
     Route: 048
  2. PROGRAF [Suspect]
     Dosage: 4 MG, UID/QD
     Route: 048

REACTIONS (1)
  - Death [Fatal]
